FAERS Safety Report 7474758-1 (Version None)
Quarter: 2011Q2

REPORT INFORMATION
  Report Type: 
  Country: None (occurrence: None)
  Receive Date: 20110509
  Receipt Date: 20110509
  Transmission Date: 20111010
  Serious: No
  Sender: FDA-Public Use
  Company Number: None

PATIENT
  Age: 62 Year
  Sex: Male

DRUGS (4)
  1. EXJADE [Concomitant]
  2. PROCRIT [Concomitant]
  3. REVLIMID [Suspect]
     Indication: MYELODYSPLASTIC SYNDROME
     Dosage: 10MG DAILY ORALLY
     Route: 048
     Dates: start: 20110213, end: 20110404
  4. NEUPOGEN [Concomitant]

REACTIONS (2)
  - FATIGUE [None]
  - NEUTROPHIL COUNT DECREASED [None]
